FAERS Safety Report 9033061 (Version 2)
Quarter: 2013Q1

REPORT INFORMATION
  Report Type: Spontaneous
  Country: JP (occurrence: None)
  Receive Date: 20130110
  Receipt Date: 20130219
  Transmission Date: 20140127
  Serious: Yes (Hospitalization)
  Sender: FDA-Public Use
  Company Number: AE-SPE-2012-028

PATIENT
  Age: 40 Year
  Sex: Female

DRUGS (3)
  1. MEIACT MS (CEFDITOREN PIVOXIL) (NOT SPECIFIED) [Suspect]
     Indication: OTITIS MEDIA ACUTE
     Dosage: DAT
     Route: 048
     Dates: start: 20121206, end: 20121207
  2. L-CARBOCISTEINE [Concomitant]
  3. FLUTICASONE PROPIONATE [Concomitant]

REACTIONS (7)
  - Drug eruption [None]
  - Conjunctivitis [None]
  - Hepatic function abnormal [None]
  - Pyrexia [None]
  - Dyspnoea [None]
  - Headache [None]
  - Stevens-Johnson syndrome [None]
